FAERS Safety Report 18487759 (Version 1)
Quarter: 2020Q4

REPORT INFORMATION
  Report Type: Spontaneous
  Country: KR (occurrence: KR)
  Receive Date: 20201110
  Receipt Date: 20201110
  Transmission Date: 20210114
  Serious: Yes (Other)
  Sender: FDA-Public Use
  Company Number: KR-B.I. PHARMACEUTICALS,INC./RIDGEFIELD-2020-BI-059412

PATIENT
  Age: 83 Year
  Sex: Male
  Weight: 73 kg

DRUGS (5)
  1. SOLIFENACIN [Concomitant]
     Active Substance: SOLIFENACIN
     Indication: NOCTURIA
     Route: 065
     Dates: start: 20191120
  2. ROSUVAMIBE [Suspect]
     Active Substance: EZETIMIBE\ROSUVASTATIN
     Indication: ESSENTIAL HYPERTENSION
     Route: 065
     Dates: start: 20200506
  3. ROSUVAMIBE [Suspect]
     Active Substance: EZETIMIBE\ROSUVASTATIN
     Indication: HYPERCHOLESTEROLAEMIA
     Route: 065
     Dates: start: 20200408
  4. MICARDIS [Suspect]
     Active Substance: TELMISARTAN
     Route: 065
     Dates: start: 20200506
  5. MICARDIS [Suspect]
     Active Substance: TELMISARTAN
     Indication: ESSENTIAL HYPERTENSION
     Route: 065
     Dates: start: 20200408

REACTIONS (1)
  - Non-small cell lung cancer [Not Recovered/Not Resolved]

NARRATIVE: CASE EVENT DATE: 20200520
